FAERS Safety Report 7007899 (Version 3)
Quarter: 2012Q4

REPORT INFORMATION
  Report Type: 
  Country: US (occurrence: US)
  Receive Date: 20050330
  Receipt Date: 20121101
  Transmission Date: 20130627
  Serious: Yes (Other)
  Sender: FDA-Public Use
  Company Number: US-PFIZER INC-2005048843

PATIENT
  Age: 59 Year
  Sex: Female

DRUGS (7)
  1. PROVERA [Suspect]
     Indication: HORMONE REPLACEMENT THERAPY
     Dosage: 2.5 mg, UNK
     Route: 048
     Dates: start: 199802, end: 199911
  2. PREMARIN [Suspect]
     Indication: HORMONE REPLACEMENT THERAPY
     Dosage: 0.625 mg, UNK
     Route: 048
     Dates: start: 199710, end: 199911
  3. PREMPRO [Suspect]
     Indication: HORMONE REPLACEMENT THERAPY
     Dosage: UNK
     Route: 048
     Dates: start: 199911, end: 200204
  4. CYCRIN [Suspect]
     Indication: HORMONE REPLACEMENT THERAPY
     Dosage: 2.5 mg, UNK
     Route: 048
     Dates: start: 199710, end: 199802
  5. HYZAAR [Concomitant]
     Indication: BLOOD PRESSURE HIGH
     Dosage: UNK
     Dates: start: 200110, end: 200205
  6. TOPROL [Concomitant]
     Indication: BLOOD PRESSURE HIGH
     Dosage: UNK
     Dates: start: 200110, end: 200205
  7. NASACORT [Concomitant]
     Indication: ALLERGY
     Dosage: UNK
     Dates: start: 200202

REACTIONS (1)
  - Breast cancer female [Unknown]
